FAERS Safety Report 5446051-X (Version None)
Quarter: 2007Q3

REPORT INFORMATION
  Report Type: 
  Country: None (occurrence: None)
  Receive Date: 20070907
  Receipt Date: 20070827
  Transmission Date: 20080115
  Serious: Yes (Congenital Anomaly)
  Sender: FDA-Public Use
  Company Number: US-BAYER-200712286BWH

PATIENT
  Age: 0 Hour
  Sex: Male

DRUGS (2)
  1. ADALAT CC [Suspect]
     Indication: UNEVALUABLE EVENT
     Route: 064
     Dates: start: 20050101, end: 20051105
  2. NITROFURANTOIN [Concomitant]
     Indication: CYSTITIS
     Route: 064
     Dates: start: 20050101

REACTIONS (5)
  - ABNORMAL BEHAVIOUR [None]
  - CLEFT LIP [None]
  - CLEFT PALATE [None]
  - MENTAL IMPAIRMENT [None]
  - SENSORY INTEGRATIVE DYSFUNCTION [None]
